FAERS Safety Report 7742943-7 (Version None)
Quarter: 2011Q3

REPORT INFORMATION
  Report Type: 
  Country: None (occurrence: None)
  Receive Date: 20110912
  Receipt Date: 20110831
  Transmission Date: 20111222
  Serious: Yes (Hospitalization)
  Sender: FDA-Public Use
  Company Number: DE-ELI_LILLY_AND_COMPANY-DE201108009351

PATIENT
  Age: 83 Year
  Sex: Female

DRUGS (8)
  1. TORSEMIDE [Concomitant]
     Dosage: 0.5 DF, BID
  2. PANTOPRAZOLE [Concomitant]
     Dosage: 1 DF, QD
  3. DOSS [Concomitant]
     Dosage: 1 DF, QD
  4. FORTEO [Suspect]
     Indication: OSTEOPOROSIS
     Dosage: 1 DF, QD
     Route: 058
     Dates: start: 20110513
  5. NOVAMINSULFON [Concomitant]
     Dosage: 500 MG, TID
  6. VITAMIN D [Concomitant]
     Dosage: 1 DF, WEEKLY (1/W)
  7. METOPROLOL TARTRATE [Concomitant]
     Dosage: 1 DF, QD
  8. ASPIRIN [Concomitant]

REACTIONS (3)
  - ANAEMIA [None]
  - PALLOR [None]
  - DYSPNOEA EXERTIONAL [None]
